FAERS Safety Report 6215530-X (Version None)
Quarter: 2009Q2

REPORT INFORMATION
  Report Type: 
  Country: None (occurrence: None)
  Receive Date: 20090605
  Receipt Date: 20090526
  Transmission Date: 20091009
  Serious: Yes (Hospitalization)
  Sender: FDA-Public Use
  Company Number: JP-JNJCH-2009015081

PATIENT
  Age: 54 Year
  Sex: Male

DRUGS (1)
  1. CETIRIZINE HYDROCHLORIDE [Suspect]
     Indication: ECZEMA
     Dosage: TEXT:10 MG
     Route: 048

REACTIONS (2)
  - MOBILITY DECREASED [None]
  - MUSCULOSKELETAL DISCOMFORT [None]
